FAERS Safety Report 24913568 (Version 1)
Quarter: 2025Q1

REPORT INFORMATION
  Report Type: Report from Study
  Country: ZA (occurrence: ZA)
  Receive Date: 20250201
  Receipt Date: 20250201
  Transmission Date: 20250408
  Serious: Yes (Other)
  Sender: ROCHE
  Company Number: ZA-ROCHE-10000189194

PATIENT
  Sex: Female

DRUGS (1)
  1. OCREVUS [Suspect]
     Active Substance: OCRELIZUMAB
     Indication: Multiple sclerosis
     Dosage: THEREAFTER EVERY 6MONTHS
     Route: 040
     Dates: start: 20210812

REACTIONS (3)
  - Magnetic resonance imaging head abnormal [Unknown]
  - Multiple sclerosis [Unknown]
  - Cerebral atrophy [Unknown]
